FAERS Safety Report 14937348 (Version 1)
Quarter: 2018Q2

REPORT INFORMATION
  Report Type: Spontaneous
  Country: CN (occurrence: CN)
  Receive Date: 20180525
  Receipt Date: 20180525
  Transmission Date: 20180711
  Serious: Yes (Other)
  Sender: FDA-Public Use
  Company Number: CN-ACCORD-067319

PATIENT
  Age: 68 Year
  Sex: Male

DRUGS (3)
  1. CISPLATIN. [Suspect]
     Active Substance: CISPLATIN
     Indication: LUNG ADENOCARCINOMA RECURRENT
     Dosage: ON MARCH 23 AND APRIL 13
     Dates: start: 20160413
  2. CISPLATIN. [Suspect]
     Active Substance: CISPLATIN
     Indication: LUNG ADENOCARCINOMA RECURRENT
     Dosage: ON 23-MAR-2016 AND 13-APR-2016
     Dates: start: 20160323
  3. PEMETREXED. [Suspect]
     Active Substance: PEMETREXED
     Indication: LUNG ADENOCARCINOMA RECURRENT
     Dosage: ON 23-MAR-2016 AND 13-APR-2016
     Dates: start: 20160323

REACTIONS (2)
  - Neutrophil count decreased [Unknown]
  - Amoebic lung abscess [Recovered/Resolved]

NARRATIVE: CASE EVENT DATE: 201603
